FAERS Safety Report 12820174 (Version 2)
Quarter: 2016Q4

REPORT INFORMATION
  Report Type: Spontaneous
  Country: DE (occurrence: DE)
  Receive Date: 20161006
  Receipt Date: 20161209
  Transmission Date: 20170207
  Serious: Yes (Hospitalization, Other)
  Sender: FDA-Public Use
  Company Number: PHHY2016DE134833

PATIENT
  Age: 77 Year
  Sex: Female
  Weight: 70 kg

DRUGS (1)
  1. ENTRESTO [Suspect]
     Active Substance: SACUBITRIL\VALSARTAN
     Indication: CARDIAC FAILURE
     Dosage: UNK
     Route: 065
     Dates: start: 20160509

REACTIONS (32)
  - Hemiplegia [Recovering/Resolving]
  - Ischaemic cardiomyopathy [Unknown]
  - Oral candidiasis [Unknown]
  - Cerebral ischaemia [Unknown]
  - Neurologic neglect syndrome [Unknown]
  - Post stroke depression [Unknown]
  - Hypertension [Unknown]
  - Cardiomegaly [Unknown]
  - Angiopathy [Unknown]
  - Ejection fraction decreased [Unknown]
  - Impaired gastric emptying [Unknown]
  - Renal impairment [Unknown]
  - Hyperlipidaemia [Unknown]
  - Cardiac failure [Unknown]
  - Dysphagia [Recovering/Resolving]
  - Colitis [Unknown]
  - Infection [Unknown]
  - Mitral valve incompetence [Unknown]
  - Bundle branch block left [Unknown]
  - Osteoarthritis [Unknown]
  - Cerebrovascular accident [Unknown]
  - Trunk injury [Unknown]
  - Coronary artery disease [Unknown]
  - Urinary tract infection [Recovered/Resolved]
  - Carotid artery stenosis [Unknown]
  - Abdominal pain [Unknown]
  - Hypovolaemia [Unknown]
  - Acute kidney injury [Unknown]
  - Diarrhoea [Unknown]
  - Nitrituria [Unknown]
  - Type 2 diabetes mellitus [Unknown]
  - Hypotonia [Unknown]

NARRATIVE: CASE EVENT DATE: 2016
